FAERS Safety Report 10479238 (Version 2)
Quarter: 2014Q4

REPORT INFORMATION
  Report Type: Spontaneous
  Country: US (occurrence: US)
  Receive Date: 20140926
  Receipt Date: 20141016
  Transmission Date: 20150528
  Serious: Yes (Other)
  Sender: FDA-Public Use
  Company Number: US-TARO-2014TAR00385

PATIENT
  Age: 63 Year
  Sex: Female
  Weight: 61.22 kg

DRUGS (2)
  1. MULTIVITAMIN [Concomitant]
     Active Substance: VITAMINS
     Dosage: UNK, 1X/DAY
  2. FLUOROURACIL TOPICAL CREAM USP 5% [Suspect]
     Active Substance: FLUOROURACIL
     Dosage: 1 DOSAGE UNITS, 2X/DAY
     Dates: start: 20140717, end: 20140806

REACTIONS (8)
  - Erythema [Recovered/Resolved]
  - Enterobacter infection [Recovered/Resolved]
  - Haemorrhage [Recovered/Resolved]
  - Impetigo [Recovered/Resolved]
  - Burns second degree [Recovered/Resolved]
  - Activities of daily living impaired [Recovered/Resolved]
  - Drug effect incomplete [Recovered/Resolved]
  - Staphylococcal skin infection [Recovered/Resolved]

NARRATIVE: CASE EVENT DATE: 201407
